FAERS Safety Report 7400318-4 (Version None)
Quarter: 2011Q2

REPORT INFORMATION
  Report Type: 
  Country: None (occurrence: None)
  Receive Date: 20110407
  Receipt Date: 20110324
  Transmission Date: 20111010
  Serious: Yes (Other)
  Sender: FDA-Public Use
  Company Number: CA-CELGENEUS-028-21880-11033042

PATIENT
  Sex: Female
  Weight: 58.6 kg

DRUGS (14)
  1. REVLIMID [Suspect]
     Indication: MULTIPLE MYELOMA
     Dosage: 15 MILLIGRAM
     Route: 048
     Dates: start: 20100429
  2. RAMIPRIL [Concomitant]
     Dosage: 2.5 MILLIGRAM
     Route: 065
  3. VALACYCLOVIR [Concomitant]
     Dosage: 1000 MILLIGRAM
     Route: 065
  4. SENNA [Concomitant]
     Dosage: 8.6 MILLIGRAM
     Route: 065
  5. LIPITOR [Concomitant]
     Dosage: 40 MILLIGRAM
     Route: 065
  6. CITALOPRAM [Concomitant]
     Dosage: 20 MILLIGRAM
     Route: 065
  7. OMEPRAZOLE [Concomitant]
     Dosage: 20 MILLIGRAM
     Route: 065
  8. GABAPENTIN [Concomitant]
     Dosage: 300 MILLIGRAM
     Route: 065
  9. PLAVIX [Concomitant]
     Dosage: 75 MILLIGRAM
     Route: 065
  10. DOMPERIDONE [Concomitant]
     Dosage: 10 MILLIGRAM
     Route: 065
  11. REVLIMID [Suspect]
     Dosage: 10 MILLIGRAM
     Route: 048
     Dates: start: 20101015
  12. ASPIRIN [Concomitant]
     Dosage: 81 MILLIGRAM
     Route: 065
  13. DEXAMETHASONE [Suspect]
     Indication: MULTIPLE MYELOMA
     Dosage: 12 MILLIGRAM
     Route: 065
     Dates: start: 20100429
  14. ATENOLOL [Concomitant]
     Dosage: 25 MILLIGRAM
     Route: 065

REACTIONS (1)
  - TRANSITIONAL CELL CARCINOMA [None]
